FAERS Safety Report 16234203 (Version 3)
Quarter: 2021Q3

REPORT INFORMATION
  Report Type: Spontaneous
  Country: US (occurrence: US)
  Receive Date: 20190424
  Receipt Date: 20210818
  Transmission Date: 20211014
  Serious: No
  Sender: FDA-Public Use
  Company Number: US-ARBOR PHARMACEUTICALS, LLC-US-2019ARB000542

PATIENT
  Age: 8 Year
  Sex: Female

DRUGS (5)
  1. TRIPTODUR [Suspect]
     Active Substance: TRIPTORELIN
  2. TRIPTODUR [Suspect]
     Active Substance: TRIPTORELIN
     Dosage: UNK, SINGLE
     Route: 030
     Dates: start: 20200616, end: 20200616
  3. TRIPTODUR [Suspect]
     Active Substance: TRIPTORELIN
     Dosage: UNK, SINGLE
     Route: 030
  4. TRIPTODUR [Suspect]
     Active Substance: TRIPTORELIN
     Indication: PRECOCIOUS PUBERTY
     Dosage: 22.5 MG, SINGLE, EVERY 6 MONTHS
     Route: 030
     Dates: start: 20190124, end: 20190124
  5. TRIPTODUR [Suspect]
     Active Substance: TRIPTORELIN

REACTIONS (5)
  - Weight increased [Not Recovered/Not Resolved]
  - Headache [Unknown]
  - Mood altered [Unknown]
  - Vaginal haemorrhage [Unknown]
  - Inappropriate schedule of product administration [Unknown]

NARRATIVE: CASE EVENT DATE: 2019
